FAERS Safety Report 9721172 (Version 1)
Quarter: 2013Q4

REPORT INFORMATION
  Report Type: Spontaneous
  Country: US (occurrence: US)
  Receive Date: 20131129
  Receipt Date: 20131129
  Transmission Date: 20140711
  Serious: No
  Sender: FDA-Public Use
  Company Number: US-PFIZER INC-2013339752

PATIENT
  Age: 42 Year
  Sex: Female
  Weight: 54.4 kg

DRUGS (1)
  1. CYTOMEL [Suspect]
     Indication: HYPOTHYROIDISM
     Dosage: 25 UG, UNK
     Route: 048

REACTIONS (3)
  - Skin fissures [Unknown]
  - Lip exfoliation [Unknown]
  - Chapped lips [Unknown]
